FAERS Safety Report 8340148-2 (Version None)
Quarter: 2012Q2

REPORT INFORMATION
  Report Type: 
  Country: None (occurrence: None)
  Receive Date: 20120507
  Receipt Date: 20120501
  Transmission Date: 20120825
  Serious: Yes (Hospitalization, Other)
  Sender: FDA-Public Use
  Company Number: US-BAYER-2011-120762

PATIENT
  Age: 17 Year
  Sex: Female
  Weight: 91 kg

DRUGS (6)
  1. ZYRTEC [Concomitant]
     Dosage: OTC AS NEEDED
  2. YAZ [Suspect]
     Indication: PREMENSTRUAL SYNDROME
     Dosage: UNK
     Dates: start: 20060101, end: 20090101
  3. MICROLIPID [Concomitant]
  4. IRON [Concomitant]
     Dosage: OTC ONCE DAILY
  5. VICODIN [Concomitant]
     Indication: PAIN
     Dosage: 5/325 MG TABLETS 1 +#8211; 2 TABLETS EVERY 4 +#8211; 6 HOURS AS NEEDED
  6. YAZ [Suspect]
     Indication: MENSTRUATION IRREGULAR

REACTIONS (11)
  - PULMONARY EMBOLISM [None]
  - DEEP VEIN THROMBOSIS [None]
  - BILIARY DYSKINESIA [None]
  - NAUSEA [None]
  - INJURY [None]
  - ANHEDONIA [None]
  - VOMITING [None]
  - GALLBLADDER DISORDER [None]
  - ABDOMINAL PAIN UPPER [None]
  - GALLBLADDER PAIN [None]
  - EMOTIONAL DISTRESS [None]
